FAERS Safety Report 8031046 (Version 4)
Quarter: 2014Q2

REPORT INFORMATION
  Report Type: Report from Study
  Country: US (occurrence: US)
  Receive Date: 20110712
  Receipt Date: 20140512
  Transmission Date: 20141212
  Serious: Yes (Life-Threatening, Hospitalization)
  Sender: FDA-Public Use
  Company Number: US-GLAXOSMITHKLINE-Z0009864A

PATIENT
  Age: 43 Year
  Sex: Male
  Weight: 105.3 kg

DRUGS (3)
  1. DARAPLADIB [Suspect]
     Indication: ACUTE CORONARY SYNDROME
     Dosage: 160MG PER DAY
     Dates: start: 20110307
  2. CARVEDILOL [Suspect]
     Indication: CORONARY ARTERY DISEASE
     Dosage: 3.125MG TWICE PER DAY
     Route: 048
     Dates: start: 20110326, end: 20110425
  3. LITHIUM [Suspect]
     Indication: BIPOLAR DISORDER
     Dosage: 1800MG AT NIGHT
     Route: 048
     Dates: start: 20100524, end: 20110521

REACTIONS (2)
  - Suicide attempt [Recovered/Resolved with Sequelae]
  - Renal failure acute [Recovered/Resolved]
